FAERS Safety Report 26086069 (Version 1)
Quarter: 2025Q4

REPORT INFORMATION
  Report Type: Report from Study
  Country: US (occurrence: US)
  Receive Date: 20251125
  Receipt Date: 20251125
  Transmission Date: 20260117
  Serious: Yes (Other)
  Sender: IMMUNOCORE
  Company Number: US-IMMUNOCORE, LTD-2025-IMC-004684

PATIENT
  Sex: Female

DRUGS (1)
  1. KIMMTRAK [Suspect]
     Active Substance: TEBENTAFUSP-TEBN
     Indication: Metastatic ocular melanoma
     Dosage: 68 MICROGRAM

REACTIONS (4)
  - Neuropathy peripheral [Unknown]
  - Pruritus [Unknown]
  - Eyelash discolouration [Unknown]
  - Skin discolouration [Unknown]
